FAERS Safety Report 7432829-X (Version None)
Quarter: 2011Q2

REPORT INFORMATION
  Report Type: 
  Country: None (occurrence: None)
  Receive Date: 20110422
  Receipt Date: 20110420
  Transmission Date: 20111010
  Serious: Yes (Death)
  Sender: FDA-Public Use
  Company Number: EC-ROCHE-772391

PATIENT
  Sex: Female
  Weight: 57.6 kg

DRUGS (3)
  1. LOSARTAN POTASSIUM [Concomitant]
     Indication: HYPERTENSION
     Dosage: DRUG REPORTED: ANGIORETIC FORTE/LOSARTAN PLUS HYDROCLOROTIAZIDE.
     Route: 048
     Dates: start: 20090301
  2. CALCIUM [Concomitant]
     Indication: OSTEOPENIA
     Route: 048
     Dates: start: 20090325
  3. BONIVA [Suspect]
     Indication: OSTEOPOROSIS
     Route: 048
     Dates: start: 20091111, end: 20110302

REACTIONS (3)
  - CEREBROVASCULAR DISORDER [None]
  - OCULAR HYPERAEMIA [None]
  - HEADACHE [None]
